FAERS Safety Report 6398188-9 (Version None)
Quarter: 2009Q4

REPORT INFORMATION
  Report Type: 
  Country: None (occurrence: None)
  Receive Date: 20091013
  Receipt Date: 20091008
  Transmission Date: 20100525
  Serious: Yes (Hospitalization)
  Sender: FDA-Public Use
  Company Number: US-BRISTOL-MYERS SQUIBB COMPANY-14811608

PATIENT
  Age: 57 Year
  Sex: Male
  Weight: 83 kg

DRUGS (8)
  1. CARBOPLATIN [Suspect]
     Indication: NON-SMALL CELL LUNG CANCER
     Dosage: Q 21 DAYS X3
     Dates: start: 20090929
  2. PACLITAXEL [Suspect]
     Indication: NON-SMALL CELL LUNG CANCER
     Dosage: Q21 DAYS X3
     Dates: start: 20090929
  3. CETUXIMAB [Suspect]
     Indication: NON-SMALL CELL LUNG CANCER
     Dosage: (TD 784MG);250MG/M2 IV WEEKLY
     Route: 042
     Dates: start: 20090629, end: 20090929
  4. RADIATION THERAPY [Suspect]
     Indication: NON-SMALL CELL LUNG CANCER
     Dates: end: 20090929
  5. LISINOPRIL AND HYDROCHLOROTHIAZIDE [Concomitant]
     Dates: start: 20020101
  6. GEMFIBROZIL [Concomitant]
     Dates: start: 20020101
  7. ASPIRIN [Concomitant]
     Dates: start: 20090101
  8. PREVACID [Concomitant]
     Dates: start: 20090101

REACTIONS (2)
  - DIVERTICULITIS [None]
  - ILEUS [None]
